FAERS Safety Report 9934380 (Version 1)
Quarter: 2014Q1

REPORT INFORMATION
  Report Type: Spontaneous
  Country: US (occurrence: US)
  Receive Date: 20140228
  Receipt Date: 20140228
  Transmission Date: 20141002
  Serious: No
  Sender: FDA-Public Use
  Company Number: US-ABBVIE-14P-163-1185901-00

PATIENT
  Sex: Male
  Weight: 106.24 kg

DRUGS (4)
  1. ANDROGEL [Suspect]
     Indication: BLOOD TESTOSTERONE DECREASED
     Dosage: INCREASED TO 3 PUMPS AND THEN 4 PUMPS
     Route: 061
     Dates: start: 201310
  2. ANDROGEL [Suspect]
     Route: 061
     Dates: start: 2013, end: 2013
  3. ANDROGEL [Suspect]
     Route: 061
     Dates: start: 2013
  4. CIALIS [Concomitant]
     Indication: PRODUCT USED FOR UNKNOWN INDICATION

REACTIONS (1)
  - Blood testosterone decreased [Not Recovered/Not Resolved]
